FAERS Safety Report 11803687 (Version 2)
Quarter: 2015Q4

REPORT INFORMATION
  Report Type: Spontaneous
  Country: GB (occurrence: GB)
  Receive Date: 20151204
  Receipt Date: 20151216
  Transmission Date: 20160305
  Serious: Yes (Death, Other)
  Sender: FDA-Public Use
  Company Number: PHFR2015GB009286

PATIENT
  Sex: Male

DRUGS (1)
  1. TEGRETOL XR [Suspect]
     Active Substance: CARBAMAZEPINE
     Indication: BRAIN ABSCESS
     Dosage: 500 MG, BID
     Route: 048
     Dates: start: 200105

REACTIONS (8)
  - Post procedural complication [Unknown]
  - Nervous system disorder [Unknown]
  - Accidental underdose [Unknown]
  - Product use issue [Unknown]
  - Heart injury [Unknown]
  - Myocardial infarction [Fatal]
  - Seizure [Unknown]
  - Paraesthesia [Unknown]
